FAERS Safety Report 5162714-8 (Version None)
Quarter: 2006Q4

REPORT INFORMATION
  Report Type: 
  Country: None (occurrence: None)
  Receive Date: 20061201
  Receipt Date: 20060925
  Transmission Date: 20070319
  Serious: No
  Sender: FDA-Public Use
  Company Number: US-GLAXOSMITHKLINE-A0621324A

PATIENT
  Age: 50 Year
  Sex: Male

DRUGS (8)
  1. AUGMENTIN '125' [Suspect]
     Indication: DRUG USE FOR UNKNOWN INDICATION
     Dosage: 500TAB TWICE PER DAY
     Route: 048
  2. NOVOCAINE [Concomitant]
  3. NOVOLOG [Concomitant]
  4. LANTUS [Concomitant]
  5. ASPIRIN [Concomitant]
  6. METFORMIN [Concomitant]
  7. ACTOS [Concomitant]
  8. LIPITOR [Concomitant]

REACTIONS (1)
  - DRUG SCREEN POSITIVE [None]
